FAERS Safety Report 24325296 (Version 1)
Quarter: 2024Q3

REPORT INFORMATION
  Report Type: Spontaneous
  Country: US (occurrence: US)
  Receive Date: 20240916
  Receipt Date: 20240916
  Transmission Date: 20241016
  Serious: No
  Sender: SANOFI AVENTIS
  Company Number: US-SA-2024SA265642

PATIENT
  Age: 30 Year
  Sex: Female

DRUGS (2)
  1. DUPIXENT [Suspect]
     Active Substance: DUPILUMAB
     Indication: Dermatitis atopic
     Dosage: 300 MG, QOW
     Route: 058
  2. ALCOHOL [Suspect]
     Active Substance: ALCOHOL

REACTIONS (6)
  - Periorbital pain [Unknown]
  - Injection site warmth [Unknown]
  - Pruritus [Unknown]
  - Erythema [Unknown]
  - Injection site swelling [Recovered/Resolved]
  - Injection site erythema [Unknown]
